FAERS Safety Report 9124794 (Version 1)
Quarter: 2013Q1

REPORT INFORMATION
  Report Type: Spontaneous
  Country: DE (occurrence: DE)
  Receive Date: 20130227
  Receipt Date: 20130227
  Transmission Date: 20140127
  Serious: Yes (Other)
  Sender: FDA-Public Use
  Company Number: DE-PFIZER INC-2013069012

PATIENT
  Age: 31 Year
  Sex: Female
  Weight: 74 kg

DRUGS (10)
  1. VENLAFAXINE HYDROCHLORIDE [Suspect]
     Indication: DEPRESSION
     Dosage: 300 MG DAILY
     Route: 048
     Dates: start: 20111012
  2. VENLAFAXINE HYDROCHLORIDE [Suspect]
     Dosage: 150 MG DAILY
     Route: 048
  3. VENLAFAXINE HYDROCHLORIDE [Suspect]
     Dosage: 75 MG DAILY
     Route: 048
  4. VENLAFAXINE HYDROCHLORIDE [Suspect]
     Dosage: 37.5 MG DAILY
     Route: 048
     Dates: end: 20120606
  5. METFORMIN HCL [Suspect]
     Indication: POLYCYSTIC OVARIES
     Dosage: 850 MG, 2X/DAY
     Route: 048
  6. MELPERONE [Suspect]
     Indication: DEPRESSION
     Dosage: 200 MG DAILY
     Route: 048
     Dates: start: 20111012
  7. MELPERONE [Suspect]
     Dosage: 100 MG DAILY
     Route: 048
  8. MELPERONE [Suspect]
     Dosage: 50 MG DAILY
     Route: 048
  9. MELPERONE [Suspect]
     Dosage: 25 MG DAILY
     Route: 048
     Dates: end: 20120606
  10. FEMIBION [Concomitant]
     Indication: PROPHYLAXIS OF NEURAL TUBE DEFECT
     Dosage: 0.8 MG DAILY
     Route: 048

REACTIONS (3)
  - Factor V Leiden mutation [Unknown]
  - Vulvovaginal mycotic infection [Unknown]
  - Off label use [Unknown]
